FAERS Safety Report 6570439-7 (Version None)
Quarter: 2010Q1

REPORT INFORMATION
  Report Type: 
  Country: None (occurrence: None)
  Receive Date: 20100204
  Receipt Date: 20090526
  Transmission Date: 20100710
  Serious: No
  Sender: FDA-Public Use
  Company Number: A0786126A

PATIENT
  Age: 82 Year
  Sex: Female

DRUGS (3)
  1. ARIXTRA [Suspect]
     Dosage: 2.5MG PER DAY
     Route: 058
     Dates: start: 20090520
  2. TYLENOL-500 [Concomitant]
  3. HYDROCODONE [Concomitant]

REACTIONS (1)
  - EPISTAXIS [None]
